FAERS Safety Report 24963945 (Version 1)
Quarter: 2025Q1

REPORT INFORMATION
  Report Type: Report from Study
  Country: GB (occurrence: GB)
  Receive Date: 20250213
  Receipt Date: 20250213
  Transmission Date: 20250408
  Serious: Yes (Hospitalization, Other)
  Sender: ABBVIE
  Company Number: GB-ABBVIE-6122951

PATIENT
  Age: 72 Year
  Sex: Male
  Weight: 85.1 kg

DRUGS (17)
  1. SKYRIZI [Suspect]
     Active Substance: RISANKIZUMAB-RZAA
     Indication: Psoriasis
     Route: 058
     Dates: start: 20231215
  2. BISOPROLOL [Concomitant]
     Active Substance: BISOPROLOL
     Indication: Product used for unknown indication
     Dates: start: 20230816, end: 20240204
  3. COAL TAR\COCONUT OIL\SALICYLIC ACID [Concomitant]
     Active Substance: COAL TAR\COCONUT OIL\SALICYLIC ACID
     Indication: Product used for unknown indication
     Dates: start: 20230831
  4. AVEENO [Concomitant]
     Active Substance: DIMETHICONE\HOMOSALATE\OCTINOXATE\OCTISALATE\TITANIUM DIOXIDE
     Indication: Product used for unknown indication
     Dates: start: 20230831
  5. EDOXABAN [Concomitant]
     Active Substance: EDOXABAN
     Indication: Product used for unknown indication
     Dates: start: 20240503
  6. BECLOMETHASONE DIPROPIONATE [Concomitant]
     Active Substance: BECLOMETHASONE DIPROPIONATE
     Indication: Product used for unknown indication
     Dates: start: 20240513
  7. ALBUTEROL [Concomitant]
     Active Substance: ALBUTEROL
     Indication: Product used for unknown indication
     Dates: start: 20240513
  8. COVID-19 vaccine [Concomitant]
     Indication: Product used for unknown indication
     Dates: start: 20240530, end: 20240530
  9. COVID-19 vaccine [Concomitant]
     Indication: Product used for unknown indication
     Dates: start: 20241017, end: 20241017
  10. AMITRIPTYLINE [Concomitant]
     Active Substance: AMITRIPTYLINE
     Indication: Product used for unknown indication
     Dates: start: 20240807
  11. ATORVASTATIN [Concomitant]
     Active Substance: ATORVASTATIN
     Indication: Product used for unknown indication
     Dates: start: 20141118
  12. LEVOTHYROXINE SODIUM [Concomitant]
     Active Substance: LEVOTHYROXINE SODIUM
     Indication: Product used for unknown indication
     Dates: start: 20150520
  13. ALLOPURINOL [Concomitant]
     Active Substance: ALLOPURINOL
     Indication: Product used for unknown indication
     Dates: start: 20190114
  14. AMLODIPINE [Concomitant]
     Active Substance: AMLODIPINE BESYLATE
     Indication: Product used for unknown indication
     Dates: start: 20200420
  15. RAMIPRIL [Concomitant]
     Active Substance: RAMIPRIL
     Indication: Product used for unknown indication
     Dates: start: 20200420
  16. ISOPROPYL MYRISTATE\MINERAL OIL [Concomitant]
     Active Substance: ISOPROPYL MYRISTATE\MINERAL OIL
     Indication: Product used for unknown indication
     Dates: start: 20230328
  17. Oilatum [Concomitant]
     Indication: Product used for unknown indication
     Dates: start: 20230804

REACTIONS (7)
  - Pneumonia [Recovered/Resolved with Sequelae]
  - Lung opacity [Unknown]
  - Respiratory failure [Unknown]
  - Pulmonary oedema [Unknown]
  - Left ventricular dysfunction [Unknown]
  - Intermittent claudication [Unknown]
  - Lung consolidation [Unknown]

NARRATIVE: CASE EVENT DATE: 20240401
